FAERS Safety Report 24529995 (Version 1)
Quarter: 2024Q4

REPORT INFORMATION
  Report Type: Spontaneous
  Country: US (occurrence: US)
  Receive Date: 20241021
  Receipt Date: 20241021
  Transmission Date: 20250114
  Serious: No
  Sender: Harrow Health
  Company Number: US-IMP-2024000869

PATIENT
  Age: 60 Year
  Sex: Male
  Weight: 86 kg

DRUGS (2)
  1. VEVYE [Suspect]
     Active Substance: CYCLOSPORINE
     Indication: Dry eye
     Dosage: 1 DROP BOTH EYES TWICE A DAY
     Route: 047
     Dates: start: 20240810
  2. Systane OTC tears [Concomitant]
     Indication: Dry eye
     Route: 065

REACTIONS (5)
  - Product delivery mechanism issue [Unknown]
  - Extra dose administered [Unknown]
  - Drug ineffective [Unknown]
  - Product use issue [Unknown]
  - Product complaint [Unknown]

NARRATIVE: CASE EVENT DATE: 20240101
